FAERS Safety Report 4489822-9 (Version None)
Quarter: 2004Q4

REPORT INFORMATION
  Report Type: 
  Country: None (occurrence: None)
  Receive Date: 20041101
  Receipt Date: 20041021
  Transmission Date: 20050328
  Serious: Yes (Hospitalization)
  Sender: FDA-Public Use
  Company Number: US-MERCK-0410USA03282

PATIENT
  Age: 44 Year
  Sex: Female

DRUGS (2)
  1. VIOXX [Suspect]
     Indication: ARTHRITIS
     Route: 048
     Dates: start: 20020101, end: 20041001
  2. HYDROCODONE BITARTRATE [Concomitant]
     Route: 065

REACTIONS (4)
  - ASTHMA [None]
  - CHEST PAIN [None]
  - DYSPNOEA [None]
  - RASH PRURITIC [None]
